FAERS Safety Report 15374326 (Version 1)
Quarter: 2018Q3

REPORT INFORMATION
  Report Type: Spontaneous
  Country: CL (occurrence: CL)
  Receive Date: 20180912
  Receipt Date: 20180912
  Transmission Date: 20181010
  Serious: Yes (Death, Hospitalization, Other)
  Sender: FDA-Public Use
  Company Number: CL-ALVOGEN-2018-ALVOGEN-097298

PATIENT
  Age: 65 Year
  Sex: Female

DRUGS (1)
  1. BUPROPION. [Suspect]
     Active Substance: BUPROPION
     Indication: PRODUCT USED FOR UNKNOWN INDICATION

REACTIONS (9)
  - Seizure [Unknown]
  - Overdose [Fatal]
  - Coma [Fatal]
  - Eye movement disorder [Unknown]
  - Hypotension [Unknown]
  - Cardiac arrest [Recovered/Resolved]
  - Myoclonus [Unknown]
  - Tachycardia [Unknown]
  - Electrocardiogram QT prolonged [Unknown]
